FAERS Safety Report 13832591 (Version 1)
Quarter: 2017Q3

REPORT INFORMATION
  Report Type: Spontaneous
  Country: US (occurrence: US)
  Receive Date: 20170803
  Receipt Date: 20170803
  Transmission Date: 20171127
  Serious: Yes (Other)
  Sender: FDA-Public Use
  Company Number: None

PATIENT
  Sex: Female
  Weight: 91.35 kg

DRUGS (1)
  1. TRIAMCINOLONE ACETONIDE, MOXIFLOXACIN HYDROCHLORIDE [Suspect]
     Active Substance: MOXIFLOXACIN\TRIAMCINOLONE
     Indication: SCHIZOPHRENIA
     Dosage: ?          OTHER FREQUENCY:ONCE;OTHER ROUTE:INTRACAMERLLY INTO THE VITREOUS CAVITY?
     Dates: start: 20170703, end: 20170703

REACTIONS (7)
  - Treatment noncompliance [None]
  - Toxicity to various agents [None]
  - Panophthalmitis [None]
  - Visual acuity reduced [None]
  - Hypopyon [None]
  - Endophthalmitis [None]
  - Anterior chamber cell [None]
